FAERS Safety Report 6779818-6 (Version None)
Quarter: 2010Q2

REPORT INFORMATION
  Report Type: 
  Country: None (occurrence: None)
  Receive Date: 20100618
  Receipt Date: 20100610
  Transmission Date: 20101027
  Serious: Yes (Hospitalization)
  Sender: FDA-Public Use
  Company Number: NL-MEDIMMUNE-MEDI-0010656

PATIENT
  Sex: Male
  Weight: 5 kg

DRUGS (4)
  1. SYNAGIS [Suspect]
     Route: 030
     Dates: start: 20091230, end: 20100207
  2. LACTULOSE [Concomitant]
  3. RANITIDINE [Concomitant]
  4. NYSTATIN [Concomitant]

REACTIONS (2)
  - RESTLESSNESS [None]
  - VOMITING [None]
